FAERS Safety Report 5116283-9 (Version None)
Quarter: 2006Q3

REPORT INFORMATION
  Report Type: 
  Country: None (occurrence: None)
  Receive Date: 20060927
  Receipt Date: 20060919
  Transmission Date: 20061208
  Serious: Yes (Other)
  Sender: FDA-Public Use
  Company Number: US-JNJFOC-20060905175

PATIENT
  Age: 9 Year
  Sex: Male

DRUGS (2)
  1. RISPERDAL [Suspect]
     Indication: AFFECTIVE DISORDER
     Route: 048
  2. CONCERTA [Concomitant]
     Indication: ATTENTION DEFICIT/HYPERACTIVITY DISORDER
     Route: 048

REACTIONS (4)
  - BLOOD PROLACTIN INCREASED [None]
  - EMPTY SELLA SYNDROME [None]
  - HEADACHE [None]
  - VISUAL ACUITY REDUCED [None]
